FAERS Safety Report 21507227 (Version 1)
Quarter: 2022Q4

REPORT INFORMATION
  Report Type: Spontaneous
  Country: FR (occurrence: FR)
  Receive Date: 20221026
  Receipt Date: 20221026
  Transmission Date: 20230112
  Serious: Yes (Disabling)
  Sender: FDA-Public Use
  Company Number: FR-FERRINGPH-2022FE05622

PATIENT

DRUGS (1)
  1. FIRMAGON [Suspect]
     Active Substance: DEGARELIX ACETATE
     Indication: Prostate cancer
     Dosage: 80 MG, MONTHLY
     Route: 065
     Dates: start: 202101, end: 20220308

REACTIONS (9)
  - Aphasia [Unknown]
  - Decreased activity [Unknown]
  - Amnesia [Unknown]
  - Feeling cold [Unknown]
  - Incoherent [Unknown]
  - Aphasia [Not Recovered/Not Resolved]
  - Impaired driving ability [Not Recovered/Not Resolved]
  - Malaise [Unknown]
  - Malaise [Unknown]

NARRATIVE: CASE EVENT DATE: 20210501
